FAERS Safety Report 4523241-1 (Version None)
Quarter: 2004Q4

REPORT INFORMATION
  Report Type: 
  Country: None (occurrence: None)
  Receive Date: 20041209
  Receipt Date: 20041209
  Transmission Date: 20050328
  Serious: Yes (Hospitalization)
  Sender: FDA-Public Use
  Company Number: None

PATIENT
  Age: 67 Year
  Sex: Female

DRUGS (2)
  1. CARBOPLATIN [Suspect]
     Indication: OVARIAN CANCER
     Dosage: 340 MG IV Q 21 DAYS
     Route: 042
     Dates: start: 20041028
  2. FLONASE [Concomitant]

REACTIONS (2)
  - NAUSEA [None]
  - VOMITING [None]
